FAERS Safety Report 11970479 (Version 1)
Quarter: 2016Q1

REPORT INFORMATION
  Report Type: Spontaneous
  Country: US (occurrence: US)
  Receive Date: 20160128
  Receipt Date: 20160128
  Transmission Date: 20160526
  Serious: No
  Sender: FDA-Public Use
  Company Number: US-ABBVIE-15K-163-1388760-00

PATIENT
  Age: 74 Year
  Sex: Female

DRUGS (2)
  1. HUMIRA [Suspect]
     Active Substance: ADALIMUMAB
     Route: 058
  2. HUMIRA [Suspect]
     Active Substance: ADALIMUMAB
     Indication: PSORIATIC ARTHROPATHY
     Route: 058
     Dates: start: 2003

REACTIONS (5)
  - Wrong technique in product usage process [Unknown]
  - Drug dose omission [Unknown]
  - Device issue [Unknown]
  - Injection site vesicles [Recovered/Resolved]
  - Drug effect delayed [Recovered/Resolved]

NARRATIVE: CASE EVENT DATE: 2003
